FAERS Safety Report 7221460-7 (Version None)
Quarter: 2010Q4

REPORT INFORMATION
  Report Type: 
  Country: None (occurrence: None)
  Receive Date: 20101230
  Receipt Date: 20101214
  Transmission Date: 20110411
  Serious: Yes (Hospitalization, Other)
  Sender: FDA-Public Use
  Company Number: ACO_20988_2010

PATIENT
  Age: 70 Year
  Sex: Female
  Weight: 103.9 kg

DRUGS (4)
  1. AMPYRA [Suspect]
     Indication: GAIT DISTURBANCE
     Dosage: 10 MG, BID, ORAL
     Route: 048
     Dates: start: 20100901, end: 20101001
  2. COPAXONE /0140902/ (GLATIRAMER ACETATE) [Concomitant]
  3. EFFEXOR [Concomitant]
  4. VITAMINS /90003601/ [Concomitant]

REACTIONS (4)
  - DIZZINESS [None]
  - KNEE ARTHROPLASTY [None]
  - MALAISE [None]
  - VOMITING [None]
